FAERS Safety Report 4494582-1 (Version None)
Quarter: 2004Q4

REPORT INFORMATION
  Report Type: 
  Country: None (occurrence: None)
  Receive Date: 20041103
  Receipt Date: 20041021
  Transmission Date: 20050328
  Serious: Yes (Disabling)
  Sender: FDA-Public Use
  Company Number: RS004803-GB

PATIENT
  Age: 71 Year
  Sex: Female

DRUGS (4)
  1. RABEPRAZOLE SODIUM [Suspect]
     Indication: GASTROOESOPHAGEAL REFLUX DISEASE
     Dosage: 20 MG, ORAL
     Route: 048
     Dates: start: 20040112, end: 20040124
  2. THYROXINE (LEVOTHYROXINE SODIUM) [Concomitant]
  3. OMEPRAZOLE [Concomitant]
  4. DOXAZOSIN [Concomitant]

REACTIONS (2)
  - PERIARTHRITIS [None]
  - PRURITUS [None]
